FAERS Safety Report 6882338-1 (Version None)
Quarter: 2010Q3

REPORT INFORMATION
  Report Type: 
  Country: None (occurrence: None)
  Receive Date: 20100729
  Receipt Date: 20100201
  Transmission Date: 20110219
  Serious: No
  Sender: FDA-Public Use
  Company Number: US-MYLANLABS-2010S1001802

PATIENT
  Age: 37 Year
  Sex: Female

DRUGS (5)
  1. LEVOTHYROXINE SODIUM [Suspect]
     Indication: HYPOTHYROIDISM
     Route: 048
     Dates: start: 20080101
  2. HYDROCHLOROTHIAZIDE [Concomitant]
  3. CLARITIN /00413701/ [Concomitant]
  4. DOXYCYCLINE [Concomitant]
  5. VENTOLIN [Concomitant]

REACTIONS (4)
  - FLUSHING [None]
  - LOCAL SWELLING [None]
  - MIGRAINE [None]
  - PYREXIA [None]
